FAERS Safety Report 16371903 (Version 1)
Quarter: 2019Q2

REPORT INFORMATION
  Report Type: Spontaneous
  Country: GB (occurrence: GB)
  Receive Date: 20190530
  Receipt Date: 20190530
  Transmission Date: 20190711
  Serious: Yes (Disabling)
  Sender: FDA-Public Use
  Company Number: GB-PFIZER INC-2019222243

PATIENT
  Age: 50 Year
  Sex: Female
  Weight: 50 kg

DRUGS (4)
  1. BENZOYL PEROXIDE. [Concomitant]
     Active Substance: BENZOYL PEROXIDE
     Dosage: 1 DF, 1X/DAY (APPLY, AS PER DERMATOLOGY)
     Dates: start: 20180202
  2. MIRTAZAPINE. [Concomitant]
     Active Substance: MIRTAZAPINE
     Dosage: 1 DF, 1X/DAY (EACH NIGHT)
     Dates: start: 20180719, end: 20180816
  3. ESTRADIOL. [Suspect]
     Active Substance: ESTRADIOL
     Dosage: 10 UG, UNK (USE AS DIRECTED)
     Dates: start: 20181002, end: 20181016
  4. OXYTETRACYCLINE [Concomitant]
     Active Substance: OXYTETRACYCLINE
     Dosage: 4 DF, 1X/DAY
     Dates: start: 20180719, end: 20180802

REACTIONS (2)
  - Vulvovaginal pain [Unknown]
  - Eye swelling [Recovered/Resolved]

NARRATIVE: CASE EVENT DATE: 20181017
